FAERS Safety Report 12131573 (Version 2)
Quarter: 2016Q1

REPORT INFORMATION
  Report Type: Spontaneous
  Country: JP (occurrence: JP)
  Receive Date: 20160301
  Receipt Date: 20160308
  Transmission Date: 20160526
  Serious: Yes (Death, Other)
  Sender: FDA-Public Use
  Company Number: JP-SA-2016SA040753

PATIENT
  Age: 64 Year
  Sex: Male

DRUGS (2)
  1. G-CSF [Concomitant]
     Active Substance: GRANULOCYTE COLONY-STIMULATING FACTOR NOS
  2. JEVTANA [Suspect]
     Active Substance: CABAZITAXEL
     Dosage: 25 (UNIT NOT SPECIFIED)
     Route: 042
     Dates: start: 201512, end: 201601

REACTIONS (6)
  - Disseminated intravascular coagulation [Fatal]
  - Renal failure [Unknown]
  - Neutrophil count decreased [Not Recovered/Not Resolved]
  - Urinary retention [Unknown]
  - Neutrophil count decreased [Recovered/Resolved]
  - Diarrhoea [Recovered/Resolved]

NARRATIVE: CASE EVENT DATE: 2016
